FAERS Safety Report 20650546 (Version 1)
Quarter: 2022Q1

REPORT INFORMATION
  Report Type: Spontaneous
  Country: CA (occurrence: CA)
  Receive Date: 20220329
  Receipt Date: 20220329
  Transmission Date: 20220423
  Serious: Yes (Other)
  Sender: FDA-Public Use
  Company Number: CA-TEVA-2022-CA-2021680

PATIENT
  Age: 85 Year
  Sex: Male
  Weight: 81 kg

DRUGS (7)
  1. BISOPROLOL [Suspect]
     Active Substance: BISOPROLOL
     Route: 065
  2. PERINDOPRIL ERBUMINE [Suspect]
     Active Substance: PERINDOPRIL ERBUMINE
     Route: 065
  3. SPIRONOLACTONE [Suspect]
     Active Substance: SPIRONOLACTONE
     Route: 065
  4. ALLOPURINOL [Suspect]
     Active Substance: ALLOPURINOL
     Route: 065
  5. DIETARY SUPPLEMENT [Suspect]
     Active Substance: DIETARY SUPPLEMENT
     Route: 065
  6. CHOLECALCIFEROL [Suspect]
     Active Substance: CHOLECALCIFEROL
     Route: 065
  7. LASIX [Suspect]
     Active Substance: FUROSEMIDE
     Route: 065

REACTIONS (6)
  - Abdominal discomfort [Unknown]
  - Diastolic dysfunction [Unknown]
  - Dizziness [Unknown]
  - Dyspnoea exertional [Unknown]
  - Gout [Unknown]
  - Orthostatic hypotension [Unknown]
